FAERS Safety Report 9029874 (Version 1)
Quarter: 2013Q1

REPORT INFORMATION
  Report Type: Spontaneous
  Country: BE (occurrence: BE)
  Receive Date: 20130124
  Receipt Date: 20130124
  Transmission Date: 20140127
  Serious: Yes (Other)
  Sender: FDA-Public Use
  Company Number: BE-BAYER-2013-007899

PATIENT
  Age: 55 Year
  Sex: 0

DRUGS (3)
  1. ACETYLSALICYLIC ACID({=100 MG) [Suspect]
  2. ASPIRIN\CAFFEINE\CODEINE [Suspect]
  3. NSAID^S [Suspect]

REACTIONS (4)
  - Large intestine perforation [None]
  - Constipation [None]
  - Peritonitis [None]
  - Faecaloma [None]
